FAERS Safety Report 23215355 (Version 1)
Quarter: 2023Q4

REPORT INFORMATION
  Report Type: Spontaneous
  Country: TW (occurrence: TW)
  Receive Date: 20231122
  Receipt Date: 20231122
  Transmission Date: 20240110
  Serious: Yes (Other)
  Sender: FDA-Public Use
  Company Number: TW-002147023-NVSC2023TW237010

PATIENT
  Age: 83 Year
  Sex: Male

DRUGS (18)
  1. ALIMTA [Suspect]
     Active Substance: PEMETREXED DISODIUM
     Indication: Non-small cell lung cancer
     Dosage: UNK (C1D1)
     Route: 065
     Dates: start: 20200819
  2. ALIMTA [Suspect]
     Active Substance: PEMETREXED DISODIUM
     Indication: Lung adenocarcinoma stage IV
     Dosage: UNK (C4D1)
     Route: 065
     Dates: start: 20201021
  3. CARBOPLATIN [Suspect]
     Active Substance: CARBOPLATIN
     Indication: Non-small cell lung cancer
     Dosage: UNK (C1D1)
     Route: 065
     Dates: start: 20230425
  4. CARBOPLATIN [Suspect]
     Active Substance: CARBOPLATIN
     Indication: Lung adenocarcinoma stage IV
     Dosage: UNK (C2D1)
     Route: 065
     Dates: start: 20230623
  5. CARBOPLATIN [Suspect]
     Active Substance: CARBOPLATIN
     Dosage: UNK (C3D1)
     Route: 065
     Dates: start: 20230723
  6. CARBOPLATIN [Suspect]
     Active Substance: CARBOPLATIN
     Dosage: UNK (C4D1)
     Route: 065
     Dates: start: 20230806
  7. DOCETAXEL [Suspect]
     Active Substance: DOCETAXEL\DOCETAXEL ANHYDROUS
     Indication: Non-small cell lung cancer
     Dosage: UNK (C1D1)
     Route: 065
     Dates: start: 20201119
  8. DOCETAXEL [Suspect]
     Active Substance: DOCETAXEL\DOCETAXEL ANHYDROUS
     Indication: Lung adenocarcinoma stage IV
     Dosage: UNK (C5D1)
     Route: 065
     Dates: start: 20210224
  9. GEMCITABINE [Suspect]
     Active Substance: GEMCITABINE
     Indication: Lung adenocarcinoma stage IV
     Dosage: UNK (C12D1)
     Route: 065
     Dates: start: 20200722
  10. GEMCITABINE [Suspect]
     Active Substance: GEMCITABINE
     Dosage: UNK (C13D1)
     Route: 065
     Dates: start: 20210321
  11. GEMCITABINE [Suspect]
     Active Substance: GEMCITABINE
     Indication: Non-small cell lung cancer
     Dosage: UNK (C1D1)
     Route: 065
     Dates: start: 20191121
  12. GEMCITABINE [Suspect]
     Active Substance: GEMCITABINE
     Dosage: UNK (C1D1)
     Route: 065
     Dates: start: 20230830
  13. GEMCITABINE [Suspect]
     Active Substance: GEMCITABINE
     Dosage: UNK (C26D1)
     Route: 065
     Dates: start: 20220209
  14. GEMCITABINE [Suspect]
     Active Substance: GEMCITABINE
     Dosage: UNK (C2D1)
     Route: 065
     Dates: start: 20230920
  15. NAVELBINE [Suspect]
     Active Substance: VINORELBINE TARTRATE
     Indication: Lung adenocarcinoma stage IV
     Dosage: UNK (C14D1)
     Route: 065
     Dates: start: 20230201
  16. NAVELBINE [Suspect]
     Active Substance: VINORELBINE TARTRATE
     Indication: Non-small cell lung cancer
     Dosage: UNK (C1D1=06 APR 2023)
     Route: 065
  17. PACLITAXEL [Suspect]
     Active Substance: PACLITAXEL
     Indication: Non-small cell lung cancer
     Dosage: UNK (C1D1)
     Route: 065
     Dates: start: 20230303
  18. PACLITAXEL [Suspect]
     Active Substance: PACLITAXEL
     Indication: Lung adenocarcinoma stage IV

REACTIONS (8)
  - Metastases to central nervous system [Unknown]
  - Non-small cell lung cancer [Unknown]
  - Metastases to lymph nodes [Unknown]
  - Pleural effusion [Unknown]
  - Dyspnoea exertional [Unknown]
  - Productive cough [Unknown]
  - Malaise [Unknown]
  - PIK3CA-activated mutation [Unknown]

NARRATIVE: CASE EVENT DATE: 20230303
